FAERS Safety Report 25078204 (Version 2)
Quarter: 2025Q2

REPORT INFORMATION
  Report Type: Spontaneous
  Country: US (occurrence: US)
  Receive Date: 20250314
  Receipt Date: 20250402
  Transmission Date: 20250716
  Serious: Yes (Death, Other)
  Sender: JOHNSON AND JOHNSON
  Company Number: US-JNJFOC-20250326204

PATIENT
  Sex: Female

DRUGS (1)
  1. CARVYKTI [Suspect]
     Active Substance: CILTACABTAGENE AUTOLEUCEL
     Indication: Product used for unknown indication

REACTIONS (3)
  - Adverse event [Fatal]
  - Paralysis [Unknown]
  - Bell^s palsy [Unknown]
